FAERS Safety Report 23890540 (Version 1)
Quarter: 2024Q2

REPORT INFORMATION
  Report Type: Spontaneous
  Country: TW (occurrence: TW)
  Receive Date: 20240523
  Receipt Date: 20240523
  Transmission Date: 20240717
  Serious: Yes (Death, Hospitalization)
  Sender: FDA-Public Use
  Company Number: TW-BAYER-2024A073393

PATIENT
  Sex: Female
  Weight: 48.8 kg

DRUGS (2)
  1. AVELOX [Suspect]
     Active Substance: MOXIFLOXACIN HYDROCHLORIDE
     Indication: Diarrhoea infectious
     Dosage: 400 MG, QD
     Route: 041
     Dates: start: 20240414
  2. AVELOX [Suspect]
     Active Substance: MOXIFLOXACIN HYDROCHLORIDE
     Indication: Diarrhoea infectious
     Dosage: 400 MG, QD
     Route: 048
     Dates: start: 202404, end: 202404

REACTIONS (5)
  - Cytokine storm [Fatal]
  - Bone marrow failure [Fatal]
  - Hepatic failure [Fatal]
  - Renal failure [Fatal]
  - Acute generalised exanthematous pustulosis [Recovering/Resolving]

NARRATIVE: CASE EVENT DATE: 20240420
